FAERS Safety Report 7306566-6 (Version None)
Quarter: 2011Q1

REPORT INFORMATION
  Report Type: 
  Country: None (occurrence: None)
  Receive Date: 20110222
  Receipt Date: 20110218
  Transmission Date: 20110831
  Serious: Yes (Other)
  Sender: FDA-Public Use
  Company Number: US-PFIZER INC-2011036691

PATIENT
  Sex: Female
  Weight: 93.878 kg

DRUGS (2)
  1. XANAX [Suspect]
     Dosage: 0.5 MG, 3X/DAY
  2. XANAX [Suspect]
     Indication: DEPRESSION
     Dosage: 0.5 MG, 2X/DAY
     Route: 048
     Dates: start: 20040101

REACTIONS (2)
  - HAEMATURIA [None]
  - SYSTEMIC LUPUS ERYTHEMATOSUS [None]
